FAERS Safety Report 4632112-1 (Version None)
Quarter: 2005Q2

REPORT INFORMATION
  Report Type: 
  Country: None (occurrence: None)
  Receive Date: 20050411
  Receipt Date: 20041231
  Transmission Date: 20051028
  Serious: Yes (Other)
  Sender: FDA-Public Use
  Company Number: GBWYE312204JAN05

PATIENT
  Sex: Female

DRUGS (6)
  1. ENBREL [Suspect]
     Indication: RHEUMATOID ARTHRITIS
     Dosage: UNKNOWN
     Route: 058
     Dates: start: 20040205, end: 20040401
  2. ENBREL [Suspect]
     Route: 058
     Dates: start: 20040401, end: 20041223
  3. PREDNISOLONE [Concomitant]
     Dates: start: 20010823
  4. FOSAMAX [Concomitant]
     Dates: start: 20021219
  5. CALCICHEW [Concomitant]
     Dates: start: 20021219
  6. LANSOPRAZOLE [Concomitant]
     Dates: start: 20020822

REACTIONS (1)
  - THROMBOCYTOPENIA [None]
